FAERS Safety Report 18808844 (Version 1)
Quarter: 2021Q1

REPORT INFORMATION
  Report Type: Spontaneous
  Country: GB (occurrence: GB)
  Receive Date: 20210129
  Receipt Date: 20210129
  Transmission Date: 20210419
  Serious: Yes (Other)
  Sender: FDA-Public Use
  Company Number: GB-PFIZER INC-2021046639

PATIENT
  Age: 58 Year
  Sex: Female
  Weight: 65 kg

DRUGS (14)
  1. ATORVASTATIN [Concomitant]
     Active Substance: ATORVASTATIN
     Dosage: 1 DF, 1X/DAY
     Dates: start: 20200512
  2. LANTUS [Concomitant]
     Active Substance: INSULIN GLARGINE
     Dosage: AS DIRECTED.
     Dates: start: 20200623
  3. SERTRALINE [Concomitant]
     Active Substance: SERTRALINE HYDROCHLORIDE
     Dosage: 1 DF, 1X/DAY
     Dates: start: 20200825
  4. INSULIN [Concomitant]
     Active Substance: INSULIN NOS
     Dosage: AS DIRECTED.
     Dates: start: 20180319
  5. DOXYCYCLINE. [Concomitant]
     Active Substance: DOXYCYCLINE
     Indication: INFECTION
     Dosage: TAKE TWO NOW, THEN ONE DAILY
     Dates: start: 20210104
  6. DULOXETINE. [Concomitant]
     Active Substance: DULOXETINE
     Dosage: 1 DF, ALTERNATE DAY
     Dates: start: 20191203
  7. FOLIC ACID. [Concomitant]
     Active Substance: FOLIC ACID
     Dosage: 1 DF, 1X/DAY
     Dates: start: 20200623
  8. PEPPERMINT OIL [MENTHA X PIPERITA ESSENTIAL OIL] [Concomitant]
     Dosage: 1 DF, 3X/DAY
     Dates: start: 20191129
  9. CLINDAMYCIN. [Concomitant]
     Active Substance: CLINDAMYCIN
     Dosage: 1 DF, 4X/DAY
     Dates: start: 20201230
  10. NOVORAPID [Concomitant]
     Active Substance: INSULIN ASPART
     Dosage: AS DIRECTED.
     Dates: start: 20200825
  11. OMEPRAZOLE. [Concomitant]
     Active Substance: OMEPRAZOLE
     Dosage: AS DIRECTED.
     Dates: start: 20200305
  12. HYOSCINE BUTYLBROMIDE [Concomitant]
     Active Substance: BUTYLSCOPOLAMINE BROMIDE
     Dosage: IF SPASM.
     Dates: start: 20190730
  13. LAXIDO [Concomitant]
     Active Substance: POLYETHYLENE GLYCOL 3350\POTASSIUM CHLORIDE\SODIUM BICARBONATE\SODIUM CHLORIDE
     Dosage: AS DIRECTED.
     Dates: start: 20190227
  14. CLINDAMYCIN HCL [Suspect]
     Active Substance: CLINDAMYCIN HYDROCHLORIDE
     Dosage: 150 MG
     Route: 065
     Dates: start: 20210104

REACTIONS (3)
  - Malaise [Unknown]
  - Paraesthesia [Unknown]
  - Rash macular [Recovering/Resolving]

NARRATIVE: CASE EVENT DATE: 20210104
